FAERS Safety Report 9110705 (Version 1)
Quarter: 2013Q1

REPORT INFORMATION
  Report Type: Spontaneous
  Country: US (occurrence: US)
  Receive Date: 20130219
  Receipt Date: 20130219
  Transmission Date: 20140127
  Serious: No
  Sender: FDA-Public Use
  Company Number: US-BRISTOL-MYERS SQUIBB COMPANY-16970030

PATIENT
  Age: 48 Year
  Sex: Female
  Weight: 51.25 kg

DRUGS (1)
  1. ORENCIA [Suspect]
     Indication: RHEUMATOID ARTHRITIS
     Dosage: LAST INFUSION WAS ON06SEP2012
     Route: 042
     Dates: start: 201206

REACTIONS (3)
  - Headache [Unknown]
  - Oropharyngeal pain [Unknown]
  - Cough [Unknown]
